FAERS Safety Report 5079574-6 (Version None)
Quarter: 2006Q3

REPORT INFORMATION
  Report Type: 
  Country: None (occurrence: None)
  Receive Date: 20060811
  Receipt Date: 20060811
  Transmission Date: 20061208
  Serious: Yes (Other)
  Sender: FDA-Public Use
  Company Number: None

PATIENT
  Age: 85 Year
  Sex: Female
  Weight: 74.8435 kg

DRUGS (1)
  1. REGLAN [Suspect]
     Indication: GASTROOESOPHAGEAL REFLUX DISEASE
     Dosage: ONE   3XDAILY   PO
     Route: 048
     Dates: start: 20060501, end: 20060720

REACTIONS (6)
  - BRUXISM [None]
  - DYSKINESIA [None]
  - FALL [None]
  - LOSS OF CONTROL OF LEGS [None]
  - NERVOUS SYSTEM DISORDER [None]
  - TETANY [None]
